FAERS Safety Report 7434558-5 (Version None)
Quarter: 2011Q2

REPORT INFORMATION
  Report Type: 
  Country: None (occurrence: None)
  Receive Date: 20110414
  Receipt Date: 20110331
  Transmission Date: 20111010
  Serious: Yes (Other)
  Sender: FDA-Public Use
  Company Number: 030483

PATIENT
  Sex: Female

DRUGS (9)
  1. HUMIRA [Concomitant]
  2. ENBREL [Concomitant]
  3. VALORON /00205402/ [Concomitant]
  4. LANTAREL [Concomitant]
  5. NOVAMINSULFON [Concomitant]
  6. DICLOFENAC [Concomitant]
  7. MABTHERA [Concomitant]
  8. ARCOXIA [Concomitant]
  9. CIMZIA [Suspect]
     Indication: RHEUMATOID ARTHRITIS
     Dosage: (SUBCUTANEOUS)
     Route: 058

REACTIONS (1)
  - BRONCHITIS [None]
